FAERS Safety Report 9924448 (Version 2)
Quarter: 2014Q1

REPORT INFORMATION
  Report Type: Spontaneous
  Country: IN (occurrence: None)
  Receive Date: 20140220
  Receipt Date: 20140228
  Transmission Date: 20141002
  Serious: Yes (Life-Threatening)
  Sender: FDA-Public Use
  Company Number: AUR-APL-2014-01726

PATIENT
  Age: 52 Year
  Sex: Female

DRUGS (4)
  1. ATENOLOL [Suspect]
     Indication: DIASTOLIC HYPERTENSION
     Dosage: 100 MG (100 MG, 1 IN 1 D), ORAL
     Route: 048
  2. METFORMIN (METFORMIN) [Concomitant]
     Indication: TYPE 2 DIABETES MELLITUS
     Dosage: 1 GM, 1 D), ORAL
     Route: 048
  3. CALCIUM (CALCIUM) [Concomitant]
     Indication: PRODUCT USED FOR UNKNOWN INDICATION
     Dosage: 500 MG (500 MG, 1 IN 1 D), ORAL
     Route: 048
  4. LEVOTHYROXINE (LEVOTHYROXINE) [Concomitant]
     Indication: HYPOTHYROIDISM
     Dosage: 100 MCG (100 MCG, 1 IN 1 D), ORAL
     Route: 048

REACTIONS (10)
  - Hepatotoxicity [None]
  - Muscle spasms [None]
  - Diarrhoea [None]
  - Jaundice [None]
  - Pyrexia [None]
  - Nausea [None]
  - Vomiting [None]
  - Decreased appetite [None]
  - Fatigue [None]
  - Drug interaction [None]
